FAERS Safety Report 10936507 (Version 1)
Quarter: 2015Q1

REPORT INFORMATION
  Report Type: Spontaneous
  Country: US (occurrence: None)
  Receive Date: 20150212
  Receipt Date: 20150212
  Transmission Date: 20150721
  Serious: No
  Sender: FDA-Public Use
  Company Number: TPA2010A05867

PATIENT
  Age: 57 Year
  Sex: Male
  Weight: 83.92 kg

DRUGS (7)
  1. GINSENG (GINSENG NOS) [Concomitant]
  2. COLCHICINE (COLCHICINE) [Concomitant]
     Active Substance: COLCHICINE
  3. VITAMIN B12 [Concomitant]
     Active Substance: CYANOCOBALAMIN
  4. ULORIC [Suspect]
     Active Substance: FEBUXOSTAT
     Indication: GOUT
     Route: 048
  5. INDOMETHACIN (INDOMETACIN) [Concomitant]
     Active Substance: INDOMETHACIN
  6. ERYTHROMYCIN (ERYTHROMYCIN) [Concomitant]
     Active Substance: ERYTHROMYCIN
  7. PREDNISONE (PREDNISONE) [Concomitant]
     Active Substance: PREDNISONE

REACTIONS (6)
  - Gout [None]
  - Disturbance in attention [None]
  - Headache [None]
  - Fatigue [None]
  - Pruritus [None]
  - Rash vesicular [None]

NARRATIVE: CASE EVENT DATE: 2010
